FAERS Safety Report 6536470-2 (Version None)
Quarter: 2010Q1

REPORT INFORMATION
  Report Type: 
  Country: None (occurrence: None)
  Receive Date: 20100113
  Receipt Date: 20091231
  Transmission Date: 20100710
  Serious: No
  Sender: FDA-Public Use
  Company Number: US-B.I. PHARMACEUTICALS,INC./RIDGEFIELD-2009-BP-14389BP

PATIENT
  Sex: Male

DRUGS (1)
  1. AGGRENOX [Suspect]
     Indication: ARTERY DISSECTION
     Route: 048
     Dates: start: 20070101, end: 20091229

REACTIONS (2)
  - DRUG HYPERSENSITIVITY [None]
  - RASH [None]
